FAERS Safety Report 5129790-X (Version None)
Quarter: 2006Q4

REPORT INFORMATION
  Report Type: 
  Country: None (occurrence: None)
  Receive Date: 20061018
  Receipt Date: 20061009
  Transmission Date: 20070319
  Serious: Yes (Other)
  Sender: FDA-Public Use
  Company Number: US-ROCHE-466797

PATIENT
  Age: 81 Year
  Sex: Male

DRUGS (3)
  1. XELODA [Suspect]
     Dosage: DOSAGE REGIMEN: 7 DAYS ON, 7 DAYS OFF
     Route: 048
     Dates: start: 20031015, end: 20040615
  2. AMARYL [Concomitant]
  3. TOPROL-XL [Concomitant]
     Indication: HYPERTENSION

REACTIONS (3)
  - PLEURAL EFFUSION [None]
  - PNEUMOTHORAX [None]
  - SUBCUTANEOUS EMPHYSEMA [None]
